FAERS Safety Report 11198706 (Version 2)
Quarter: 2020Q3

REPORT INFORMATION
  Report Type: Spontaneous
  Country: TR (occurrence: TR)
  Receive Date: 20150618
  Receipt Date: 20150723
  Transmission Date: 20201105
  Serious: Yes (Other)
  Sender: FDA-Public Use
  Company Number: TR-ROCHE-1594013

PATIENT
  Age: 73 Year
  Sex: Female

DRUGS (3)
  1. SALMON CALCITONIN [Concomitant]
  2. IBANDRONIC ACID. [Suspect]
     Active Substance: IBANDRONIC ACID
     Indication: OSTEOPOROSIS
     Route: 065
  3. ALENDRONATE [Suspect]
     Active Substance: ALENDRONATE SODIUM
     Indication: OSTEOPOROSIS
     Route: 065

REACTIONS (6)
  - Arthralgia [Recovering/Resolving]
  - Deoxypyridinoline urine increased [Unknown]
  - Pain in extremity [Recovering/Resolving]
  - Bone hypertrophy [Recovered/Resolved]
  - Gait disturbance [Unknown]
  - Back pain [Recovering/Resolving]
